FAERS Safety Report 7463517-1 (Version None)
Quarter: 2011Q2

REPORT INFORMATION
  Report Type: 
  Country: None (occurrence: None)
  Receive Date: 20110506
  Receipt Date: 20110429
  Transmission Date: 20111010
  Serious: Yes (Disabling)
  Sender: FDA-Public Use
  Company Number: PHHY2011US33791

PATIENT
  Sex: Male

DRUGS (5)
  1. VESICARE [Concomitant]
     Indication: ABDOMINAL DISCOMFORT
     Dosage: UNK
     Route: 048
  2. FAMPRIDINE [Concomitant]
     Indication: GAIT DISTURBANCE
     Dosage: UNK
     Route: 048
  3. AMITIZA [Concomitant]
     Indication: ABDOMINAL DISCOMFORT
     Dosage: UNK
     Route: 048
  4. DDAVP                                   /UNK/ [Concomitant]
     Indication: BLADDER DISORDER
     Dosage: UNK
     Route: 048
  5. GILENYA [Suspect]
     Indication: MULTIPLE SCLEROSIS
     Dosage: 0.5 MG, QD
     Route: 048
     Dates: start: 20110407

REACTIONS (4)
  - DIZZINESS [None]
  - BALANCE DISORDER [None]
  - GAIT DISTURBANCE [None]
  - VERTIGO [None]
